FAERS Safety Report 4611674-4 (Version None)
Quarter: 2005Q2

REPORT INFORMATION
  Report Type: 
  Country: None (occurrence: None)
  Receive Date: 20050311
  Receipt Date: 20050106
  Transmission Date: 20051028
  Serious: No
  Sender: FDA-Public Use
  Company Number: 2005-BP-00275BP

PATIENT
  Age: 81 Year
  Sex: Male

DRUGS (2)
  1. SPIRIVA [Suspect]
     Dosage: 1 CAP INH QD (18 MCG, 18 IN 1 D), IH
     Route: 055
  2. ATROVENT [Concomitant]

REACTIONS (3)
  - DISORIENTATION [None]
  - FATIGUE [None]
  - FEELING ABNORMAL [None]
